FAERS Safety Report 4635871-7 (Version None)
Quarter: 2005Q2

REPORT INFORMATION
  Report Type: 
  Country: None (occurrence: None)
  Receive Date: 20050413
  Receipt Date: 20050331
  Transmission Date: 20051028
  Serious: Yes (Hospitalization)
  Sender: FDA-Public Use
  Company Number: 2005052840

PATIENT
  Age: 92 Year
  Sex: Female
  Weight: 65.7716 kg

DRUGS (2)
  1. DETROL LA [Suspect]
     Indication: POLLAKIURIA
     Dosage: 4 MG (4 MG, 1 IN 1 D), ORAL
     Route: 048
     Dates: start: 20040101, end: 20040101
  2. AMPICILLIN [Suspect]
     Indication: URINARY TRACT INFECTION
     Dates: start: 20050101, end: 20050101

REACTIONS (3)
  - MICTURITION DISORDER [None]
  - URINARY TRACT INFECTION [None]
  - URTICARIA [None]
